FAERS Safety Report 7036287-9 (Version None)
Quarter: 2010Q4

REPORT INFORMATION
  Report Type: 
  Country: None (occurrence: None)
  Receive Date: 20101008
  Receipt Date: 20101005
  Transmission Date: 20110411
  Serious: Yes (Hospitalization)
  Sender: FDA-Public Use
  Company Number: GB-AMGEN-KDC443047

PATIENT
  Sex: Female

DRUGS (16)
  1. VECTIBIX [Suspect]
     Indication: GASTROOESOPHAGEAL CANCER
     Dates: start: 20100707
  2. EPIRUBICIN [Concomitant]
     Dates: start: 20100404
  3. OXALIPLATIN [Concomitant]
     Dates: start: 20100707
  4. CAPECITABINE [Concomitant]
     Dates: start: 20100707
  5. LEVOTHYROXINE SODIUM [Concomitant]
     Dates: start: 19830101
  6. LANSOPRAZOLE [Concomitant]
     Dates: start: 20100628
  7. CYCLIZINE [Concomitant]
     Dates: start: 20100720
  8. FLUCONAZOLE [Concomitant]
     Dates: start: 20100723
  9. ENSURE [Concomitant]
     Dates: start: 20100628
  10. ONDANSETRON [Concomitant]
     Route: 042
     Dates: start: 20100707
  11. DEXAMETHASONE [Concomitant]
     Dates: start: 20100707
  12. METOCLOPRAMIDE [Concomitant]
     Dates: start: 20100707
  13. DIPROBASE [Concomitant]
     Dates: start: 20100728
  14. PARACETAMOL [Concomitant]
     Dates: start: 20100728
  15. SUCRALFATE [Concomitant]
     Dates: start: 20100728
  16. LOPERAMIDE [Concomitant]
     Dates: start: 20100723

REACTIONS (3)
  - DIARRHOEA [None]
  - HYPOKALAEMIA [None]
  - NEUTROPENIA [None]
